FAERS Safety Report 6387330-1 (Version None)
Quarter: 2009Q3

REPORT INFORMATION
  Report Type: 
  Country: None (occurrence: None)
  Receive Date: 20090930
  Receipt Date: 20090916
  Transmission Date: 20100115
  Serious: Yes (Death, Hospitalization)
  Sender: FDA-Public Use
  Company Number: 2009AL002795

PATIENT
  Age: 68 Year
  Sex: Male
  Weight: 59.4212 kg

DRUGS (19)
  1. DIGOXIN [Suspect]
     Dosage: 0.25MG, DAILY, PO
     Route: 048
  2. TYLENOL (CAPLET) [Concomitant]
  3. TYLENOL W/ CODEINE NO. 3 [Concomitant]
  4. NITROGLYCERIN [Concomitant]
  5. HISMANAL [Concomitant]
  6. MOTRIN [Concomitant]
  7. ALDACTONE [Concomitant]
  8. SOTALOL [Concomitant]
  9. PRILOSEC [Concomitant]
  10. CARAFATE [Concomitant]
  11. PREDNISONE TAB [Concomitant]
  12. FERROUS SULFATE TAB [Concomitant]
  13. COZAAR [Concomitant]
  14. NEURONTIN [Concomitant]
  15. LASIX [Concomitant]
  16. VICODIN [Concomitant]
  17. AMIODARONE [Concomitant]
  18. COREG [Concomitant]
  19. COLACE [Concomitant]

REACTIONS (43)
  - ALLERGY TO ANIMAL [None]
  - ANAEMIA [None]
  - ARTERIOSCLEROSIS CORONARY ARTERY [None]
  - ATRIAL FIBRILLATION [None]
  - BLOOD GLUCOSE INCREASED [None]
  - BLOOD UREA INCREASED [None]
  - CACHEXIA [None]
  - CEREBRAL ATROPHY [None]
  - CHEST PAIN [None]
  - COLITIS [None]
  - CONSTIPATION [None]
  - COUGH [None]
  - DEHYDRATION [None]
  - DISCOMFORT [None]
  - DIVERTICULUM INTESTINAL [None]
  - DYSPNOEA [None]
  - ECONOMIC PROBLEM [None]
  - ELECTROCARDIOGRAM ST-T CHANGE [None]
  - FALL [None]
  - FLUID OVERLOAD [None]
  - HELICOBACTER INFECTION [None]
  - HYPERCALCAEMIA [None]
  - HYPOKALAEMIA [None]
  - HYPOTENSION [None]
  - HYPOXIA [None]
  - JOINT INJURY [None]
  - LEUKOCYTOSIS [None]
  - OEDEMA PERIPHERAL [None]
  - PAIN [None]
  - PELVIC FRACTURE [None]
  - PROSTATE CANCER [None]
  - PYREXIA [None]
  - RECTAL POLYP [None]
  - RESPIRATORY FAILURE [None]
  - SKIN LACERATION [None]
  - STRESS [None]
  - SYNCOPE [None]
  - TACHYCARDIA [None]
  - THERAPEUTIC AGENT TOXICITY [None]
  - THROMBOCYTOPENIA [None]
  - TRAUMATIC BRAIN INJURY [None]
  - UNEVALUABLE EVENT [None]
  - URINARY TRACT INFECTION [None]
